FAERS Safety Report 10190382 (Version 1)
Quarter: 2014Q2

REPORT INFORMATION
  Report Type: Spontaneous
  Country: US (occurrence: US)
  Receive Date: 20140522
  Receipt Date: 20140522
  Transmission Date: 20141212
  Serious: Yes (Other)
  Sender: FDA-Public Use
  Company Number: US-ASTRAZENECA-2014SE35263

PATIENT
  Age: 60 Year
  Sex: Female
  Weight: 65.8 kg

DRUGS (11)
  1. TOPROL XL [Suspect]
     Indication: SUPRAVENTRICULAR TACHYCARDIA
     Route: 048
     Dates: start: 1999, end: 2005
  2. TOPROL XL [Suspect]
     Indication: HEART RATE IRREGULAR
     Route: 048
     Dates: start: 1999, end: 2005
  3. TOPROL XL [Suspect]
     Indication: SUPRAVENTRICULAR TACHYCARDIA
     Route: 065
     Dates: start: 2005
  4. TOPROL XL [Suspect]
     Indication: HEART RATE IRREGULAR
     Route: 065
     Dates: start: 2005
  5. TOPROL XL [Suspect]
     Indication: SUPRAVENTRICULAR TACHYCARDIA
     Route: 048
  6. TOPROL XL [Suspect]
     Indication: HEART RATE IRREGULAR
     Route: 048
  7. 3M PAD [Suspect]
  8. PROGRAF [Concomitant]
     Indication: KIDNEY TRANSPLANT REJECTION
     Dates: start: 2012
  9. WELLBUTRIN XL [Concomitant]
     Indication: DEPRESSION
     Dates: start: 1999
  10. WELLBUTRIN XL [Concomitant]
     Indication: ATTENTION DEFICIT/HYPERACTIVITY DISORDER
     Dates: start: 1999
  11. VITAMIN D [Concomitant]
     Indication: BONE PAIN
     Dates: start: 2009

REACTIONS (15)
  - Pancreatitis [Unknown]
  - Heart rate abnormal [Unknown]
  - Loss of consciousness [Unknown]
  - Renal failure chronic [Unknown]
  - Fistula [Unknown]
  - Joint swelling [Unknown]
  - Pleurisy [Unknown]
  - Myalgia [Unknown]
  - Bone pain [Unknown]
  - Dyspnoea [Unknown]
  - Intentional product misuse [Unknown]
  - Off label use [Not Recovered/Not Resolved]
  - Drug ineffective [Unknown]
  - Off label use [Unknown]
  - Adverse event [Unknown]
